FAERS Safety Report 4893159-3 (Version None)
Quarter: 2005Q4

REPORT INFORMATION
  Report Type: 
  Country: None (occurrence: None)
  Receive Date: 20051223
  Receipt Date: 20050804
  Transmission Date: 20060501
  Serious: Yes (Hospitalization, Other)
  Sender: FDA-Public Use
  Company Number: PHEH2005US08674

PATIENT
  Age: 40 Year
  Sex: Male

DRUGS (1)
  1. CLOZARIL [Suspect]
     Indication: SCHIZOPHRENIA
     Dosage: 200 MG, BID, ORAL
     Route: 048
     Dates: start: 19980101, end: 20050802

REACTIONS (6)
  - BLOOD GLUCOSE INCREASED [None]
  - DIABETES MELLITUS [None]
  - KETOSIS [None]
  - LEUKOPENIA [None]
  - NEUTROPENIA [None]
  - PNEUMONIA [None]
